FAERS Safety Report 6712050-0 (Version None)
Quarter: 2010Q2

REPORT INFORMATION
  Report Type: 
  Country: None (occurrence: None)
  Receive Date: 20100505
  Receipt Date: 20100430
  Transmission Date: 20101027
  Serious: Yes (Death, Hospitalization)
  Sender: FDA-Public Use
  Company Number: PHHO2010US06715

PATIENT
  Sex: Male
  Weight: 72 kg

DRUGS (4)
  1. RAD001 [Suspect]
     Indication: SPINDLE CELL SARCOMA
     Dosage: 10MG/DAY
     Route: 048
     Dates: start: 20091215, end: 20100408
  2. CARAFATE [Concomitant]
  3. METFORMIN HCL [Concomitant]
  4. PRILOSEC [Concomitant]

REACTIONS (2)
  - DEATH [None]
  - GENERAL PHYSICAL HEALTH DETERIORATION [None]
